FAERS Safety Report 8348932-6 (Version None)
Quarter: 2012Q2

REPORT INFORMATION
  Report Type: 
  Country: None (occurrence: None)
  Receive Date: 20120508
  Receipt Date: 20120427
  Transmission Date: 20120825
  Serious: Yes (Other)
  Sender: FDA-Public Use
  Company Number: 2011SP054470

PATIENT
  Age: 50 Year
  Sex: Male
  Weight: 73 kg

DRUGS (10)
  1. NORDAZ [Concomitant]
  2. CLONAZEPAM [Concomitant]
  3. MIRTAZAPINE [Suspect]
     Indication: DEPRESSION
     Dosage: 15 MG;QD; 45 MG;QD; 30 MG;QD;
     Dates: start: 20030427, end: 20090401
  4. MIRTAZAPINE [Suspect]
     Indication: SLEEP DISORDER
     Dosage: 15 MG;QD; 45 MG;QD; 30 MG;QD;
     Dates: start: 20030427, end: 20090401
  5. MIRTAZAPINE [Suspect]
     Indication: DEPRESSION
     Dosage: 15 MG;QD; 45 MG;QD; 30 MG;QD;
     Dates: start: 20091206, end: 20091221
  6. MIRTAZAPINE [Suspect]
     Indication: SLEEP DISORDER
     Dosage: 15 MG;QD; 45 MG;QD; 30 MG;QD;
     Dates: start: 20091206, end: 20091221
  7. MIRTAZAPINE [Suspect]
     Indication: DEPRESSION
     Dosage: 15 MG;QD; 45 MG;QD; 30 MG;QD;
     Dates: start: 20090801, end: 20091205
  8. MIRTAZAPINE [Suspect]
     Indication: SLEEP DISORDER
     Dosage: 15 MG;QD; 45 MG;QD; 30 MG;QD;
     Dates: start: 20090801, end: 20091205
  9. MIRTAZAPINE [Suspect]
     Indication: DEPRESSION
     Dosage: 15 MG;QD; 45 MG;QD; 30 MG;QD;
     Dates: start: 20100310
  10. MIRTAZAPINE [Suspect]
     Indication: SLEEP DISORDER
     Dosage: 15 MG;QD; 45 MG;QD; 30 MG;QD;
     Dates: start: 20100310

REACTIONS (3)
  - PRESBYACUSIS [None]
  - TINNITUS [None]
  - LIBIDO DECREASED [None]
